FAERS Safety Report 9894398 (Version 1)
Quarter: 2014Q1

REPORT INFORMATION
  Report Type: Spontaneous
  Country: JP (occurrence: JP)
  Receive Date: 20140213
  Receipt Date: 20140213
  Transmission Date: 20141002
  Serious: Yes (Hospitalization, Other)
  Sender: FDA-Public Use
  Company Number: JP-UCBSA-112245

PATIENT
  Age: 70 Year
  Sex: Male
  Weight: 33 kg

DRUGS (14)
  1. XYZAL [Suspect]
     Route: 048
  2. ZYLORIC [Suspect]
     Indication: BLOOD URIC ACID INCREASED
     Route: 048
     Dates: start: 20131126, end: 20140121
  3. NEXAVAR [Suspect]
     Indication: HEPATOCELLULAR CARCINOMA
     Route: 048
     Dates: start: 20131121, end: 20140116
  4. FUROSEMIDE [Concomitant]
     Route: 048
  5. ALDACTONE A [Concomitant]
     Route: 048
  6. NORVASC OD [Concomitant]
     Route: 048
  7. URSO [Concomitant]
     Route: 048
  8. GLAKAY [Concomitant]
     Route: 048
  9. LACTULOSE [Concomitant]
     Route: 048
  10. TRAMCET [Concomitant]
     Route: 048
  11. LOXONIN [Concomitant]
     Route: 062
  12. EURAX [Concomitant]
     Route: 061
  13. HIRUDOID [Concomitant]
     Route: 061
  14. TRAMCET [Concomitant]
     Route: 048

REACTIONS (3)
  - Drug eruption [Recovering/Resolving]
  - Palmar-plantar erythrodysaesthesia syndrome [Recovering/Resolving]
  - Convulsion [Unknown]
